FAERS Safety Report 14308564 (Version 3)
Quarter: 2018Q3

REPORT INFORMATION
  Report Type: Spontaneous
  Country: US (occurrence: US)
  Receive Date: 20171220
  Receipt Date: 20180807
  Transmission Date: 20181010
  Serious: No
  Sender: FDA-Public Use
  Company Number: US-PFIZER INC-2017538201

PATIENT
  Age: 59 Year
  Sex: Female
  Weight: 97.51 kg

DRUGS (5)
  1. DOCETAXEL. [Suspect]
     Active Substance: DOCETAXEL
     Indication: BREAST CANCER FEMALE
     Dosage: UNK, 05 CYCLES, EVERY 3 WEEKS
     Dates: start: 20130503, end: 20130703
  2. DOCETAXEL. [Suspect]
     Active Substance: DOCETAXEL
     Indication: BREAST CANCER FEMALE
     Dosage: UNK, 05 CYCLES, EVERY 3 WEEKS
     Dates: start: 20130503, end: 20130703
  3. PARAPLATIN [Concomitant]
     Active Substance: CARBOPLATIN
     Indication: CHEMOTHERAPY
     Dosage: UNK
  4. DOCETAXEL SANDOZ [Suspect]
     Active Substance: DOCETAXEL
     Indication: BREAST CANCER FEMALE
     Dosage: UNK, 05 CYCLES, EVERY 3 WEEKS
     Dates: start: 20130503, end: 20130703
  5. DOCEFREZ [Suspect]
     Active Substance: DOCETAXEL ANHYDROUS
     Indication: BREAST CANCER FEMALE
     Dosage: UNK, 05 CYCLES, EVERY 3 WEEKS
     Dates: start: 20130503, end: 20130703

REACTIONS (2)
  - Madarosis [Not Recovered/Not Resolved]
  - Alopecia [Not Recovered/Not Resolved]

NARRATIVE: CASE EVENT DATE: 20130703
